FAERS Safety Report 4568992-8 (Version None)
Quarter: 2005Q1

REPORT INFORMATION
  Report Type: 
  Country: None (occurrence: None)
  Receive Date: 20050126
  Receipt Date: 20050126
  Transmission Date: 20050727
  Serious: Yes (Hospitalization)
  Sender: FDA-Public Use
  Company Number: None

PATIENT
  Sex: Male

DRUGS (8)
  1. THIOTHIXENE [Suspect]
     Indication: MENTAL STATUS CHANGES
     Dosage: 4-6 MX 1X/D PO
     Route: 048
  2. AMANTADINE [Concomitant]
  3. ATORVASTATIN [Concomitant]
  4. THIOXTHIXENE [Concomitant]
  5. LISINOPRIL [Concomitant]
  6. ATENOLOL [Concomitant]
  7. CALCIUM CARBONATE [Concomitant]
  8. HEPARIN [Concomitant]

REACTIONS (1)
  - INAPPROPRIATE ANTIDIURETIC HORMONE SECRETION [None]
